FAERS Safety Report 9725915 (Version 1)
Quarter: 2013Q4

REPORT INFORMATION
  Report Type: Spontaneous
  Country: US (occurrence: None)
  Receive Date: 20131202
  Receipt Date: 20131202
  Transmission Date: 20140711
  Serious: Yes (Hospitalization)
  Sender: FDA-Public Use
  Company Number: None

PATIENT
  Age: 61 Year
  Sex: Female
  Weight: 107 kg

DRUGS (7)
  1. LEXISCAN (REGADENOSON) [Suspect]
     Indication: CARDIAC STRESS TEST
     Route: 042
     Dates: start: 20131011
  2. ASPIRIN [Concomitant]
  3. LISINOPRIL [Concomitant]
  4. FENOFIBRATE [Concomitant]
  5. MULTIVITAMIN [Concomitant]
  6. CALCIUM + VITAMIN D [Concomitant]
  7. FISH OIL [Concomitant]

REACTIONS (2)
  - Atrioventricular block [None]
  - Heart rate decreased [None]
